FAERS Safety Report 9048607 (Version 1)
Quarter: 2013Q1

REPORT INFORMATION
  Report Type: Spontaneous
  Country: US (occurrence: None)
  Receive Date: 20130130
  Receipt Date: 20130130
  Transmission Date: 20140127
  Serious: Yes (Hospitalization)
  Sender: FDA-Public Use
  Company Number: None

PATIENT
  Age: 78 Year
  Sex: Female
  Weight: 45.7 kg

DRUGS (22)
  1. LANTUS [Suspect]
     Indication: HYPERGLYCAEMIA
     Dosage: 3 U NITS??RECENT
     Route: 058
  2. DUONEB [Concomitant]
  3. ASA [Concomitant]
  4. LIPITOR [Concomitant]
  5. BUTRANS [Concomitant]
  6. WELLBUTRIN [Concomitant]
  7. CETIRIZINE [Concomitant]
  8. VIT D [Concomitant]
  9. FLEXERIL [Concomitant]
  10. COLACE [Concomitant]
  11. CYMBALTA [Concomitant]
  12. ADVAIR [Concomitant]
  13. COZAAR [Concomitant]
  14. PATADY [Concomitant]
  15. FISH OIL [Concomitant]
  16. PRILOSEC [Concomitant]
  17. ZOFRAN [Concomitant]
  18. MIRALAX [Concomitant]
  19. KLOR-CON [Concomitant]
  20. SODIUM CHLORIDE [Concomitant]
  21. RESTORIL [Concomitant]
  22. THEOCHRON [Concomitant]

REACTIONS (6)
  - Dysarthria [None]
  - Adrenal insufficiency [None]
  - Encephalopathy [None]
  - Sepsis [None]
  - Hypoglycaemia [None]
  - Drug prescribing error [None]
